FAERS Safety Report 4976928-0 (Version None)
Quarter: 2006Q2

REPORT INFORMATION
  Report Type: 
  Country: None (occurrence: None)
  Receive Date: 20060413
  Receipt Date: 20060403
  Transmission Date: 20061013
  Serious: Yes (Life-Threatening, Other)
  Sender: FDA-Public Use
  Company Number: 163-21880-06010628

PATIENT
  Age: 59 Year
  Sex: Female

DRUGS (10)
  1. REVLIMID [Suspect]
     Indication: MYELODYSPLASTIC SYNDROME
     Dosage: SEE IMAGE
     Route: 048
     Dates: start: 20060120, end: 20060125
  2. REVLIMID [Suspect]
     Indication: MYELODYSPLASTIC SYNDROME
     Dosage: SEE IMAGE
     Route: 048
     Dates: start: 20060217
  3. DESFERAL (DEFEROXAMINE MESILATE) [Concomitant]
  4. ARANESP [Concomitant]
  5. VIDAZA [Concomitant]
  6. ESTRADIOL [Concomitant]
  7. ACIPHEX [Concomitant]
  8. DETROL LA [Concomitant]
  9. EFFEXOR [Concomitant]
  10. G-CSF (GRANULOCYTE COLONY STIMULATING FACTOR) [Concomitant]

REACTIONS (7)
  - BLOOD IRON INCREASED [None]
  - HAEMOGLOBIN DECREASED [None]
  - NEUTROPENIA [None]
  - PLATELET COUNT DECREASED [None]
  - PROTHROMBIN TIME PROLONGED [None]
  - RASH PRURITIC [None]
  - SERUM FERRITIN INCREASED [None]
